FAERS Safety Report 5616294-0 (Version None)
Quarter: 2008Q1

REPORT INFORMATION
  Report Type: 
  Country: None (occurrence: None)
  Receive Date: 20080204
  Receipt Date: 20080117
  Transmission Date: 20080703
  Serious: Yes (Death)
  Sender: FDA-Public Use
  Company Number: DSA_31344_2008

PATIENT
  Sex: Female
  Weight: 136.0791 kg

DRUGS (14)
  1. CARDIZEM CD [Suspect]
     Indication: HYPERTENSION
     Dosage: (240 MG ORAL)
     Route: 048
  2. RYTHMOL [Concomitant]
  3. DIGOXIN [Concomitant]
  4. LASIX [Concomitant]
  5. IMDUR [Concomitant]
  6. ALLOPURINOL [Concomitant]
  7. LISINOPRIL [Concomitant]
  8. LIPITOR [Concomitant]
  9. HYDROCODONE BITARTRATE [Concomitant]
  10. TYLENOL /00724201/ [Concomitant]
  11. METFORMIN HCL [Concomitant]
  12. GLIPIZIDE [Concomitant]
  13. INSULIN [Concomitant]
  14. PANTOPRAZOLE [Concomitant]

REACTIONS (5)
  - CARDIAC ARREST [None]
  - CARDIOPULMONARY FAILURE [None]
  - CORONARY ARTERY DISEASE [None]
  - DRUG LEVEL INCREASED [None]
  - UNRESPONSIVE TO STIMULI [None]
